FAERS Safety Report 7472080-0 (Version None)
Quarter: 2011Q2

REPORT INFORMATION
  Report Type: 
  Country: None (occurrence: None)
  Receive Date: 20110511
  Receipt Date: 20101207
  Transmission Date: 20111010
  Serious: No
  Sender: FDA-Public Use
  Company Number: A0898378A

PATIENT
  Age: 48 Year
  Sex: Female

DRUGS (5)
  1. HERCEPTIN [Concomitant]
  2. CELEXA [Concomitant]
  3. COREG [Concomitant]
  4. XANAX [Concomitant]
  5. TYKERB [Suspect]
     Indication: BREAST CANCER
     Dosage: 5TAB PER DAY
     Route: 048
     Dates: start: 20101129

REACTIONS (2)
  - DIARRHOEA [None]
  - FATIGUE [None]
